FAERS Safety Report 6088041-2 (Version None)
Quarter: 2009Q1

REPORT INFORMATION
  Report Type: 
  Country: None (occurrence: None)
  Receive Date: 20090218
  Receipt Date: 20090201
  Transmission Date: 20090719
  Serious: Yes (Death, Hospitalization)
  Sender: FDA-Public Use
  Company Number: 2009BM000028

PATIENT
  Age: 15 Year
  Sex: Male
  Weight: 35 kg

DRUGS (3)
  1. NAGLAZYME [Suspect]
     Indication: MUCOPOLYSACCHARIDOSIS VI
     Dosage: 35 ML; QW; IVDRP
     Route: 041
     Dates: start: 20081207, end: 20090112
  2. DIPHENHYDRAMINE HCL [Concomitant]
  3. HYDROCORTISONE [Concomitant]

REACTIONS (4)
  - HAEMORRHAGE INTRACRANIAL [None]
  - HYDROCEPHALUS [None]
  - INTRACRANIAL PRESSURE INCREASED [None]
  - POST PROCEDURAL COMPLICATION [None]
